FAERS Safety Report 4871948-9 (Version None)
Quarter: 2005Q4

REPORT INFORMATION
  Report Type: 
  Country: None (occurrence: None)
  Receive Date: 20051230
  Receipt Date: 20051212
  Transmission Date: 20060501
  Serious: Yes (Hospitalization)
  Sender: FDA-Public Use
  Company Number: HR200512002233

PATIENT
  Age: 67 Year
  Sex: Female

DRUGS (7)
  1. LISPRO (LISPRO) [Suspect]
     Indication: DIABETES MELLITUS
     Dosage: 44 IU, 3/D, SUBCUTANEOUS
     Route: 058
     Dates: start: 20040422, end: 20050703
  2. ANDOL (ACETYLSALICYLIC ACID) [Concomitant]
  3. TINIDIL (ISOSORBIDE DINITRATE) [Concomitant]
  4. MORPHINE SULFATE [Concomitant]
  5. ISOSORBIDE MONONITRATE [Concomitant]
  6. ENAP-HL (ENALAPRIL, HYDROCHLOROTHIAZIDE) [Concomitant]
  7. AMLODIPINE [Concomitant]

REACTIONS (2)
  - CAROTID ARTERY STENOSIS [None]
  - CEREBROVASCULAR ACCIDENT [None]
